FAERS Safety Report 7225778-3 (Version None)
Quarter: 2011Q1

REPORT INFORMATION
  Report Type: 
  Country: None (occurrence: None)
  Receive Date: 20110113
  Receipt Date: 20110106
  Transmission Date: 20110831
  Serious: Yes (Other)
  Sender: FDA-Public Use
  Company Number: JP-PFIZER INC-2011004115

PATIENT

DRUGS (1)
  1. LYRICA [Suspect]
     Dosage: 100 MG DAILY
     Route: 048

REACTIONS (3)
  - CONTUSION [None]
  - LOSS OF CONSCIOUSNESS [None]
  - FALL [None]
